FAERS Safety Report 17666663 (Version 1)
Quarter: 2020Q2

REPORT INFORMATION
  Report Type: Spontaneous
  Country: KR (occurrence: KR)
  Receive Date: 20200414
  Receipt Date: 20200414
  Transmission Date: 20200713
  Serious: Yes (Other)
  Sender: FDA-Public Use
  Company Number: KR-MYLANLABS-2020M1038144

PATIENT
  Age: 40 Year
  Sex: Male

DRUGS (2)
  1. PACLITAXEL. [Suspect]
     Active Substance: PACLITAXEL
     Indication: METASTATIC GASTRIC CANCER
     Dosage: 80 MILLIGRAM/SQ. METER, QW
     Route: 065
  2. RAMUCIRUMAB [Suspect]
     Active Substance: RAMUCIRUMAB
     Indication: METASTATIC GASTRIC CANCER
     Dosage: 8 MILLIGRAM/KILOGRAM, BIWEEKLY
     Route: 065

REACTIONS (2)
  - Haemangioma of skin [Recovering/Resolving]
  - Pyogenic granuloma [Recovering/Resolving]
